FAERS Safety Report 5963776-8 (Version None)
Quarter: 2008Q4

REPORT INFORMATION
  Report Type: 
  Country: None (occurrence: None)
  Receive Date: 20081120
  Receipt Date: 20081112
  Transmission Date: 20090506
  Serious: Yes (Other)
  Sender: FDA-Public Use
  Company Number: 2008SP020962

PATIENT
  Age: 55 Year
  Sex: Male

DRUGS (4)
  1. RIBAVIRIN [Suspect]
     Indication: HEPATITIS C
  2. PEGASYS [Suspect]
     Indication: HEPATITIS C
     Dosage: 180 MCG QW
  3. AZATHIOPRINE [Suspect]
     Indication: COLITIS ULCERATIVE
     Dosage: 2 MG/KG QD
  4. COPEGUS [Suspect]
     Indication: HEPATITIS C
     Dosage: 1200 MG QD

REACTIONS (2)
  - BONE MARROW TOXICITY [None]
  - PANCYTOPENIA [None]
